FAERS Safety Report 5554344-0 (Version None)
Quarter: 2007Q4

REPORT INFORMATION
  Report Type: 
  Country: None (occurrence: None)
  Receive Date: 20071213
  Receipt Date: 20070725
  Transmission Date: 20080405
  Serious: No
  Sender: FDA-Public Use
  Company Number: US-AMGEN-KDL234351

PATIENT
  Sex: Female

DRUGS (3)
  1. ENBREL [Suspect]
     Indication: BEHCET'S SYNDROME
     Route: 058
     Dates: start: 20070630
  2. ENBREL [Suspect]
     Indication: POLYARTHRITIS
  3. IMURAN [Concomitant]
     Route: 048
     Dates: start: 20030101

REACTIONS (2)
  - VERTIGO [None]
  - VISUAL DISTURBANCE [None]
